FAERS Safety Report 25633362 (Version 1)
Quarter: 2025Q3

REPORT INFORMATION
  Report Type: Spontaneous
  Country: GB (occurrence: GB)
  Receive Date: 20250801
  Receipt Date: 20250801
  Transmission Date: 20251021
  Serious: Yes (Other)
  Sender: TORRENT PHARMA INC.
  Company Number: None

PATIENT
  Age: 65 Year
  Sex: Female
  Weight: 64 kg

DRUGS (1)
  1. APIXABAN [Suspect]
     Active Substance: APIXABAN
     Indication: Atrial flutter
     Dosage: 5 MG BD
     Route: 065
     Dates: start: 20240910

REACTIONS (2)
  - Vasculitis [Not Recovered/Not Resolved]
  - Cutaneous vasculitis [Unknown]

NARRATIVE: CASE EVENT DATE: 20250723
